FAERS Safety Report 14820358 (Version 1)
Quarter: 2018Q2

REPORT INFORMATION
  Report Type: Spontaneous
  Country: US (occurrence: US)
  Receive Date: 20180427
  Receipt Date: 20180427
  Transmission Date: 20180711
  Serious: No
  Sender: FDA-Public Use
  Company Number: US-BAUSCH-BL-2017-008128

PATIENT
  Age: 78 Year
  Sex: Male

DRUGS (2)
  1. ALDARA [Suspect]
     Active Substance: IMIQUIMOD
     Route: 061
     Dates: start: 2017
  2. ALDARA [Suspect]
     Active Substance: IMIQUIMOD
     Indication: BASAL CELL CARCINOMA
     Route: 061
     Dates: start: 201701, end: 2017

REACTIONS (1)
  - Application site scab [Unknown]

NARRATIVE: CASE EVENT DATE: 2017
